FAERS Safety Report 7699537-1 (Version None)
Quarter: 2011Q3

REPORT INFORMATION
  Report Type: 
  Country: None (occurrence: None)
  Receive Date: 20110821
  Receipt Date: 20110817
  Transmission Date: 20111222
  Serious: Yes (Hospitalization, Other)
  Sender: FDA-Public Use
  Company Number: US-AMGEN-USASP2011041093

PATIENT
  Age: 72 Year
  Sex: Female
  Weight: 86.621 kg

DRUGS (1)
  1. NPLATE [Suspect]
     Indication: IDIOPATHIC THROMBOCYTOPENIC PURPURA
     Dosage: UNK
     Dates: start: 20090123, end: 20090701

REACTIONS (2)
  - UROSEPSIS [None]
  - PLATELET COUNT INCREASED [None]
